FAERS Safety Report 4714329-0 (Version None)
Quarter: 2005Q3

REPORT INFORMATION
  Report Type: 
  Country: None (occurrence: None)
  Receive Date: 20050705
  Receipt Date: 20050304
  Transmission Date: 20060218
  Serious: Yes (Other)
  Sender: FDA-Public Use
  Company Number: 2005-0008130

PATIENT
  Age: 51 Year
  Sex: Female

DRUGS (8)
  1. TRUVADA [Suspect]
     Indication: ACQUIRED IMMUNODEFICIENCY SYNDROME
     Dosage: 1 IN 1 D, ORAL
     Route: 048
     Dates: start: 20040920
  2. EFAVIRENZ [Concomitant]
  3. RIFABUTIN (RIFABUTIN) [Concomitant]
  4. CLARITHROMYCIN (CLARITHROMYCIN) (OINTMENT) [Concomitant]
  5. ETHAMBUTOL (ETHAMBUTOL) [Concomitant]
  6. DAPSONE [Concomitant]
  7. FOLIC ACID [Concomitant]
  8. RIFAMPICIN [Concomitant]

REACTIONS (2)
  - BLOOD CREATININE INCREASED [None]
  - DRUG INTERACTION [None]
